FAERS Safety Report 11886105 (Version 6)
Quarter: 2016Q2

REPORT INFORMATION
  Report Type: Spontaneous
  Country: US (occurrence: US)
  Receive Date: 20160104
  Receipt Date: 20160513
  Transmission Date: 20160815
  Serious: Yes (Death, Hospitalization, Other)
  Sender: FDA-Public Use
  Company Number: US-PFIZER INC-2015463007

PATIENT
  Age: 60 Year
  Sex: Female
  Weight: 182 kg

DRUGS (5)
  1. IBRANCE [Suspect]
     Active Substance: PALBOCICLIB
     Indication: BREAST CANCER METASTATIC
     Dosage: 125 MG, CYCLIC (1 CAP D1-D21 Q28D)
     Route: 048
     Dates: start: 20151103
  2. IBRANCE [Suspect]
     Active Substance: PALBOCICLIB
     Dosage: 100 MG, CYCLIC (DAYS 1-21 Q 28 DAYS)
     Route: 048
  3. LETROZOLE. [Suspect]
     Active Substance: LETROZOLE
     Dosage: UNK
  4. IBRANCE [Suspect]
     Active Substance: PALBOCICLIB
     Dosage: 125 MG, 1X/DAY
     Route: 048
     Dates: start: 20151103
  5. IBRANCE [Suspect]
     Active Substance: PALBOCICLIB
     Dosage: 100 MG, CYCLIC (DAYS 1-21 Q 28 DAYS)
     Route: 048
     Dates: start: 20151103

REACTIONS (18)
  - Insomnia [Unknown]
  - Device related infection [Unknown]
  - Haemoglobin decreased [Unknown]
  - Vomiting [Recovered/Resolved]
  - Dehydration [Unknown]
  - Motion sickness [Unknown]
  - Anxiety [Unknown]
  - Ascites [Unknown]
  - Nausea [Recovered/Resolved]
  - Death [Fatal]
  - Red blood cell count decreased [Unknown]
  - Gastrooesophageal reflux disease [Unknown]
  - Gait disturbance [Unknown]
  - White blood cell count abnormal [Unknown]
  - Thrombosis [Unknown]
  - Disease progression [Unknown]
  - Breast cancer metastatic [Unknown]
  - Fatigue [Unknown]

NARRATIVE: CASE EVENT DATE: 20160111
